FAERS Safety Report 4961443-0 (Version None)
Quarter: 2006Q1

REPORT INFORMATION
  Report Type: 
  Country: None (occurrence: None)
  Receive Date: 20060329
  Receipt Date: 20060316
  Transmission Date: 20060701
  Serious: Yes (Other)
  Sender: FDA-Public Use
  Company Number: 223231

PATIENT
  Age: 80 Year
  Sex: Female

DRUGS (1)
  1. MABTHERA (RITUXIMAB)CONC FOR SOLUTION FOR INFUSION [Suspect]
     Indication: NON-HODGKIN'S LYMPHOMA
     Dosage: SEE IMAGE

REACTIONS (2)
  - LOWER RESPIRATORY TRACT INFECTION [None]
  - SQUAMOUS CELL CARCINOMA OF SKIN [None]
